FAERS Safety Report 4480526-5 (Version None)
Quarter: 2004Q4

REPORT INFORMATION
  Report Type: 
  Country: None (occurrence: None)
  Receive Date: 20041019
  Receipt Date: 20041006
  Transmission Date: 20050328
  Serious: Yes (Other)
  Sender: FDA-Public Use
  Company Number: 2004067250

PATIENT
  Age: 65 Year
  Sex: Male
  Weight: 87 kg

DRUGS (5)
  1. AMLODIPINE [Suspect]
     Indication: HYPERTENSION
     Dosage: 10 MG (10 MG , 1 IN 1 D)
     Dates: start: 20040201, end: 20040824
  2. METFORMIN HYDROCHLORIDE (METFORMIN HYDROCHORIDE) [Concomitant]
  3. ATENOLOL [Concomitant]
  4. KARVEA HCT (HYDROCHLOROTHIAZIDE, IRBESARTAN) [Concomitant]
  5. ACETYLSALICYLIC ACID SRT [Concomitant]

REACTIONS (4)
  - ABDOMINAL PAIN UPPER [None]
  - BLOOD PRESSURE INCREASED [None]
  - DIABETES MELLITUS INADEQUATE CONTROL [None]
  - MYOCARDIAL ISCHAEMIA [None]
